FAERS Safety Report 7264684-5 (Version None)
Quarter: 2011Q1

REPORT INFORMATION
  Report Type: 
  Country: None (occurrence: None)
  Receive Date: 20110131
  Receipt Date: 20110112
  Transmission Date: 20110831
  Serious: No
  Sender: FDA-Public Use
  Company Number: US-B.I. PHARMACEUTICALS,INC./RIDGEFIELD-2010-BP-14058BP

PATIENT
  Sex: Female

DRUGS (3)
  1. ZANTAC 75 [Suspect]
     Indication: HELICOBACTER INFECTION
     Route: 048
     Dates: start: 20100101
  2. XANAX [Concomitant]
     Indication: ANXIETY
  3. VASOTEC [Concomitant]
     Indication: HYPERTENSION

REACTIONS (2)
  - FEELING ABNORMAL [None]
  - PYREXIA [None]
